FAERS Safety Report 4816415-3 (Version None)
Quarter: 2005Q4

REPORT INFORMATION
  Report Type: 
  Country: None (occurrence: None)
  Receive Date: 20051028
  Receipt Date: 20051013
  Transmission Date: 20060501
  Serious: Yes (Life-Threatening)
  Sender: FDA-Public Use
  Company Number: S05-GER-03738-01

PATIENT
  Age: 69 Year
  Sex: Male

DRUGS (8)
  1. ESCITALOPRAM OXALATE [Suspect]
     Indication: DEPRESSED MOOD
     Dosage: 10 MG QD PO
     Route: 048
     Dates: start: 20050804
  2. LYRICA [Concomitant]
  3. VALORON N [Concomitant]
  4. VOLTAREN [Concomitant]
  5. NEXIUM [Concomitant]
  6. POTASSIUM CHLORIDE [Concomitant]
  7. METOCLOPRAMIDE [Concomitant]
  8. FRAGMIN (HEPARIN-FRACTION, SODIUM SLAT) [Concomitant]

REACTIONS (4)
  - CARDIAC ARREST [None]
  - CIRCULATORY COLLAPSE [None]
  - HYPERKALAEMIA [None]
  - MYDRIASIS [None]
